FAERS Safety Report 7128584-3 (Version None)
Quarter: 2010Q4

REPORT INFORMATION
  Report Type: 
  Country: None (occurrence: None)
  Receive Date: 20101115
  Receipt Date: 20101110
  Transmission Date: 20110411
  Serious: Yes (Hospitalization)
  Sender: FDA-Public Use
  Company Number: 2010SP059292

PATIENT
  Age: 86 Year
  Sex: Male

DRUGS (2)
  1. AERIUS (DESLORATADINE /01398501/) [Suspect]
     Indication: PRURITUS
     Dosage: PO
     Route: 048
     Dates: start: 20101026
  2. AERIUS (DESLORATADINE /01398501/) [Suspect]
     Indication: RASH
     Dosage: PO
     Route: 048
     Dates: start: 20101026

REACTIONS (1)
  - ATRIAL FIBRILLATION [None]
